FAERS Safety Report 10921148 (Version 52)
Quarter: 2019Q1

REPORT INFORMATION
  Report Type: Report from Study
  Country: CA (occurrence: CA)
  Receive Date: 20150317
  Receipt Date: 20190328
  Transmission Date: 20190417
  Serious: Yes (Hospitalization, Other)
  Sender: FDA-Public Use
  Company Number: CA-SA-2015SA027452

PATIENT
  Age: 31 Year
  Sex: Male
  Weight: 89 kg

DRUGS (12)
  1. ALEMTUZUMAB [Suspect]
     Active Substance: ALEMTUZUMAB
     Indication: RELAPSING-REMITTING MULTIPLE SCLEROSIS
     Dosage: 12 MG,QD
     Route: 041
     Dates: start: 20150302, end: 20150304
  2. ESCITALOPRAM [Concomitant]
     Active Substance: ESCITALOPRAM OXALATE
     Dosage: UNK
     Route: 048
  3. REACTINE [CETIRIZINE HYDROCHLORIDE] [Concomitant]
     Active Substance: CETIRIZINE HYDROCHLORIDE
     Dosage: 10 MG,BID
     Route: 048
     Dates: start: 20150301, end: 20150305
  4. VITAMIN D [ERGOCALCIFEROL] [Concomitant]
     Active Substance: ERGOCALCIFEROL
     Dosage: UNK
     Route: 048
  5. ACYCLOVIR [ACICLOVIR] [Concomitant]
     Active Substance: ACYCLOVIR
     Dosage: 200 MG,BID
     Route: 048
     Dates: start: 20150302
  6. ACETYLSALICYLIC ACID [Concomitant]
     Active Substance: ASPIRIN
     Dosage: UNK
  7. ESOMEPRAZOLE. [Concomitant]
     Active Substance: ESOMEPRAZOLE MAGNESIUM
     Dosage: UNK
     Route: 048
  8. BENADRYL [Concomitant]
     Active Substance: DIPHENHYDRAMINE HYDROCHLORIDE
     Dosage: 50 MG,UNK
     Route: 048
     Dates: start: 20150302, end: 20150306
  9. GRAVOL [Concomitant]
     Active Substance: DIMENHYDRINATE
     Dosage: 50 MG,UNK
     Route: 048
     Dates: start: 20150302, end: 20150306
  10. ZANTAC [Concomitant]
     Active Substance: RANITIDINE HYDROCHLORIDE
     Dosage: 150 MG,BID
     Route: 048
     Dates: start: 20150301, end: 20150305
  11. TYLENOL [Concomitant]
     Active Substance: ACETAMINOPHEN
     Dosage: 1000 MG,UNK
     Route: 048
     Dates: start: 20150302, end: 20150306
  12. METHYLPREDNISOLONE. [Concomitant]
     Active Substance: METHYLPREDNISOLONE
     Dosage: 1 G,UNK
     Route: 042
     Dates: start: 20150302, end: 20150304

REACTIONS (48)
  - Somnolence [Recovered/Resolved]
  - pH urine increased [Recovered/Resolved]
  - Hyperlipidaemia [Unknown]
  - Pyrexia [Not Recovered/Not Resolved]
  - Chills [Recovered/Resolved]
  - Urine phosphorus abnormal [Not Recovered/Not Resolved]
  - Mean cell haemoglobin decreased [Not Recovered/Not Resolved]
  - White blood cell count increased [Not Recovered/Not Resolved]
  - Neutrophil count increased [Recovered/Resolved]
  - Insomnia [Unknown]
  - Protein urine present [Recovered/Resolved]
  - Haemoglobin urine present [Not Recovered/Not Resolved]
  - Uhthoff^s phenomenon [Unknown]
  - Monocyte count increased [Recovered/Resolved]
  - Red cell distribution width increased [Not Recovered/Not Resolved]
  - Red blood cell count increased [Not Recovered/Not Resolved]
  - Pseudomonas test positive [Unknown]
  - Respiratory rate increased [Recovering/Resolving]
  - Mean cell volume decreased [Not Recovered/Not Resolved]
  - White blood cells urine positive [Not Recovered/Not Resolved]
  - Dysstasia [Unknown]
  - Escherichia test positive [Not Recovered/Not Resolved]
  - Proteus test positive [Not Recovered/Not Resolved]
  - Dizziness [Recovered/Resolved]
  - Blood urine present [Not Recovered/Not Resolved]
  - Chromaturia [Recovered/Resolved]
  - Sensory loss [Recovered/Resolved]
  - Klebsiella test positive [Not Recovered/Not Resolved]
  - Haemoglobin decreased [Recovered/Resolved]
  - Urine abnormality [Recovered/Resolved]
  - Urine analysis abnormal [Not Recovered/Not Resolved]
  - Nitrite urine present [Not Recovered/Not Resolved]
  - Musculoskeletal stiffness [Unknown]
  - Culture urine positive [Not Recovered/Not Resolved]
  - Red blood cells urine positive [Not Recovered/Not Resolved]
  - Red blood cell microcytes present [Not Recovered/Not Resolved]
  - Red blood cell hypochromic morphology present [Not Recovered/Not Resolved]
  - Urinary tract infection [Recovered/Resolved]
  - Urinary retention [Unknown]
  - Haemoptysis [Unknown]
  - Cough [Unknown]
  - Platelet count increased [Recovered/Resolved]
  - Creatinine urine decreased [Recovered/Resolved]
  - Haematocrit decreased [Recovered/Resolved]
  - Enterococcus test positive [Not Recovered/Not Resolved]
  - Dyspnoea [Unknown]
  - Neurogenic bladder [Unknown]
  - Breath sounds abnormal [Recovering/Resolving]

NARRATIVE: CASE EVENT DATE: 201503
